FAERS Safety Report 6933744-8 (Version None)
Quarter: 2010Q3

REPORT INFORMATION
  Report Type: 
  Country: None (occurrence: None)
  Receive Date: 20100820
  Receipt Date: 20100811
  Transmission Date: 20110219
  Serious: Yes (Hospitalization)
  Sender: FDA-Public Use
  Company Number: DK-ASTRAZENECA-2010SE37642

PATIENT
  Age: 33555 Day
  Sex: Female

DRUGS (5)
  1. NEXIUM [Suspect]
     Indication: GASTROOESOPHAGEAL REFLUX DISEASE
     Route: 048
     Dates: end: 20100727
  2. KALEORID [Concomitant]
     Indication: MINERAL SUPPLEMENTATION
     Route: 048
  3. FURIX [Concomitant]
     Indication: DIURETIC THERAPY
     Route: 048
  4. FERRO DURETTER [Concomitant]
     Indication: MINERAL SUPPLEMENTATION
     Route: 048
  5. ELTROXIN [Concomitant]
     Indication: MYXOEDEMA
     Route: 048

REACTIONS (4)
  - CONJUNCTIVITIS [None]
  - DYSPNOEA [None]
  - PLEURAL EFFUSION [None]
  - RHINITIS [None]
